FAERS Safety Report 10335550 (Version 4)
Quarter: 2014Q4

REPORT INFORMATION
  Report Type: Spontaneous
  Country: US (occurrence: US)
  Receive Date: 20140723
  Receipt Date: 20141107
  Transmission Date: 20150528
  Serious: Yes (Hospitalization, Disabling, Other)
  Sender: FDA-Public Use
  Company Number: US-009507513-1407USA008648

PATIENT
  Sex: Female
  Weight: 61.3 kg

DRUGS (2)
  1. FOSAMAX [Suspect]
     Active Substance: ALENDRONATE SODIUM
     Indication: OSTEOPENIA
     Dosage: 70 MG, QW
     Route: 048
     Dates: start: 20050126, end: 201207
  2. FOSAMAX [Suspect]
     Active Substance: ALENDRONATE SODIUM
     Indication: OSTEOPOROSIS
     Dosage: 70 MG, QD
     Route: 048

REACTIONS (16)
  - Blood glucose abnormal [Unknown]
  - Inappropriate schedule of drug administration [Unknown]
  - Spinal column stenosis [Unknown]
  - Haemorrhagic anaemia [Unknown]
  - Musculoskeletal pain [Unknown]
  - Humerus fracture [Unknown]
  - Intervertebral disc degeneration [Unknown]
  - Neck pain [Unknown]
  - Arthritis [Unknown]
  - Pain in extremity [Unknown]
  - Pancreatitis [Unknown]
  - Intramedullary rod insertion [Unknown]
  - Micturition urgency [Unknown]
  - Hypothyroidism [Unknown]
  - Femur fracture [Unknown]
  - Muscle strain [Unknown]

NARRATIVE: CASE EVENT DATE: 200601
